FAERS Safety Report 8153172-X (Version None)
Quarter: 2012Q1

REPORT INFORMATION
  Report Type: 
  Country: None (occurrence: None)
  Receive Date: 20120103
  Receipt Date: 20111031
  Transmission Date: 20120608
  Serious: No
  Sender: FDA-Public Use
  Company Number: AE-2011-002923

PATIENT
  Age: 46 Year
  Sex: Male
  Weight: 96.1626 kg

DRUGS (7)
  1. METFORMIN HCL [Concomitant]
  2. NEXIUM [Concomitant]
  3. PROZAC [Concomitant]
  4. RIBAVIRIN [Concomitant]
  5. INSULIN FLEX PEN (INSULIN) [Concomitant]
  6. INCIVEK [Suspect]
     Dosage: 2250 MG (750 MG,1 IN 8 HR),ORAL
     Route: 048
     Dates: start: 20111009
  7. PEGASYS [Concomitant]

REACTIONS (2)
  - NAUSEA [None]
  - SLEEP DISORDER [None]
